FAERS Safety Report 10388133 (Version 2)
Quarter: 2014Q3

REPORT INFORMATION
  Report Type: Spontaneous
  Country: BR (occurrence: BR)
  Receive Date: 20140815
  Receipt Date: 20140911
  Transmission Date: 20150326
  Serious: Yes (Other)
  Sender: FDA-Public Use
  Company Number: BR-BAYER-2014-117746

PATIENT
  Age: 47 Year
  Sex: Female

DRUGS (3)
  1. DIANE 35 [Suspect]
     Active Substance: CYPROTERONE ACETATE\ETHINYL ESTRADIOL
     Indication: GENITAL HAEMORRHAGE
     Route: 048
  2. QLAIRA [Suspect]
     Active Substance: DIENOGEST\ESTRADIOL VALERATE
     Indication: GENITAL HAEMORRHAGE
  3. QLAIRA [Suspect]
     Active Substance: DIENOGEST\ESTRADIOL VALERATE
     Indication: HORMONE REPLACEMENT THERAPY
     Dosage: 1 DF, ONCE
     Route: 048
     Dates: start: 20140803, end: 20140803

REACTIONS (5)
  - Inappropriate schedule of drug administration [None]
  - Heart rate increased [Recovered/Resolved]
  - Off label use [None]
  - Cardiac failure [Recovered/Resolved]
  - Drug ineffective for unapproved indication [None]

NARRATIVE: CASE EVENT DATE: 20140803
